FAERS Safety Report 11796296 (Version 1)
Quarter: 2015Q4

REPORT INFORMATION
  Report Type: Spontaneous
  Country: US (occurrence: None)
  Receive Date: 20151202
  Receipt Date: 20151202
  Transmission Date: 20160305
  Serious: Yes (Life-Threatening, Hospitalization)
  Sender: FDA-Public Use
  Company Number: None

PATIENT
  Age: 73 Year
  Sex: Male
  Weight: 94.3 kg

DRUGS (18)
  1. CLOPODIGREL [Concomitant]
  2. HYDROCHLOROTHIAZIDE. [Concomitant]
     Active Substance: HYDROCHLOROTHIAZIDE
  3. KETOCONAZOLE SHAMPOO [Concomitant]
     Active Substance: KETOCONAZOLE
  4. METFORMIN [Concomitant]
     Active Substance: METFORMIN HYDROCHLORIDE
  5. ROSUVASTATIN [Concomitant]
     Active Substance: ROSUVASTATIN
  6. FINESTERIDE [Concomitant]
     Active Substance: FINASTERIDE
  7. CARVEDILOL CR [Concomitant]
  8. TIOTROPIUM [Concomitant]
     Active Substance: TIOTROPIUM
  9. ALBUTEROL. [Concomitant]
     Active Substance: ALBUTEROL
  10. FLUTICASONE NASAL SPRAY [Concomitant]
     Active Substance: FLUTICASONE\FLUTICASONE PROPIONATE
  11. TOCILIZUMAB [Suspect]
     Active Substance: TOCILIZUMAB
     Indication: ACUTE MYOCARDIAL INFARCTION
     Route: 058
     Dates: start: 20151007, end: 20151007
  12. ASPIRIN. [Concomitant]
     Active Substance: ASPIRIN
  13. TAMSULOSIN [Concomitant]
     Active Substance: TAMSULOSIN
  14. AMLODIPINE [Concomitant]
     Active Substance: AMLODIPINE BESYLATE
  15. GABAPENTIN. [Concomitant]
     Active Substance: GABAPENTIN
  16. INSULIN ASPARTASE/INSULIN LANTAS [Concomitant]
  17. ISOSORBIDE MONO-NITRATE [Concomitant]
  18. LISINOPRIL. [Concomitant]
     Active Substance: LISINOPRIL

REACTIONS (8)
  - Graft infection [None]
  - Injury [None]
  - Thromboembolectomy [None]
  - Incision site haemorrhage [None]
  - Blood glucose increased [None]
  - Pain in extremity [None]
  - Leukocytosis [None]
  - Staphylococcus test negative [None]

NARRATIVE: CASE EVENT DATE: 20151016
